FAERS Safety Report 7471569-8 (Version None)
Quarter: 2011Q2

REPORT INFORMATION
  Report Type: 
  Country: None (occurrence: None)
  Receive Date: 20110511
  Receipt Date: 20110217
  Transmission Date: 20111010
  Serious: Yes (Hospitalization, Other)
  Sender: FDA-Public Use
  Company Number: US-BAYER-201038413NA

PATIENT
  Age: 33 Year
  Sex: Female
  Weight: 90.703 kg

DRUGS (7)
  1. DOXYCYCLIN [DOXYCYCLINE] [Concomitant]
     Dosage: 100 MG, BID
  2. GLUCOPHAGE [Concomitant]
     Dosage: 500 MG, BID
  3. FLONATE [Concomitant]
     Dosage: 1 TAB/ DAILY
  4. YAZ [Suspect]
     Indication: PRODUCT USED FOR UNKNOWN INDICATION
     Dosage: UNK
     Route: 048
     Dates: start: 20070921, end: 20080925
  5. FOLATE SODIUM [Concomitant]
  6. YASMIN [Suspect]
     Indication: PRODUCT USED FOR UNKNOWN INDICATION
     Dosage: UNK UNK, UNK
     Route: 048
     Dates: start: 20070508, end: 20070707
  7. AMBIEN [Concomitant]
     Dosage: 10 MG, QD

REACTIONS (1)
  - DEEP VEIN THROMBOSIS [None]
